FAERS Safety Report 7920726-2 (Version None)
Quarter: 2011Q4

REPORT INFORMATION
  Report Type: 
  Country: None (occurrence: None)
  Receive Date: 20111117
  Receipt Date: 20111108
  Transmission Date: 20120403
  Serious: Yes (Hospitalization)
  Sender: FDA-Public Use
  Company Number: US-AMGEN-USASP2011058852

PATIENT

DRUGS (1)
  1. ENBREL [Suspect]
     Dosage: 25 MG, QWK
     Route: 064
     Dates: start: 20010101, end: 20030701

REACTIONS (6)
  - PREMATURE BABY [None]
  - FEEDING DISORDER NEONATAL [None]
  - MATERNAL CONDITION AFFECTING FOETUS [None]
  - CAESAREAN SECTION [None]
  - NEONATAL RESPIRATORY DISTRESS SYNDROME [None]
  - JAUNDICE NEONATAL [None]
